FAERS Safety Report 5749239-3 (Version None)
Quarter: 2008Q2

REPORT INFORMATION
  Report Type: 
  Country: None (occurrence: None)
  Receive Date: 20080527
  Receipt Date: 20080516
  Transmission Date: 20081010
  Serious: Yes (Hospitalization)
  Sender: FDA-Public Use
  Company Number: AU-WYE-G00700307

PATIENT
  Age: 30 Year
  Sex: Female

DRUGS (1)
  1. DIMETAPP 12 HOUR [Suspect]
     Indication: NASAL CONGESTION
     Dosage: 2-3 TIMES/DAY (500MCG/ML)
     Route: 045
     Dates: start: 20071101

REACTIONS (5)
  - CAESAREAN SECTION [None]
  - DRUG EXPOSURE DURING PREGNANCY [None]
  - INTENTIONAL OVERDOSE [None]
  - PREMATURE LABOUR [None]
  - PREMATURE RUPTURE OF MEMBRANES [None]
